FAERS Safety Report 19270754 (Version 2)
Quarter: 2021Q3

REPORT INFORMATION
  Report Type: Spontaneous
  Country: US (occurrence: US)
  Receive Date: 20210518
  Receipt Date: 20210816
  Transmission Date: 20211014
  Serious: Yes (Hospitalization, Other)
  Sender: FDA-Public Use
  Company Number: US-TAKEDA-2021TUS029931

PATIENT
  Sex: Male

DRUGS (2)
  1. NINLARO [Suspect]
     Active Substance: IXAZOMIB CITRATE
     Indication: PLASMA CELL MYELOMA
     Dosage: 4 MILLIGRAM
     Route: 048
     Dates: start: 20210501
  2. REVLIMID [Concomitant]
     Active Substance: LENALIDOMIDE
     Dosage: UNK

REACTIONS (7)
  - Clavicle fracture [Unknown]
  - Thoracic vertebral fracture [Recovering/Resolving]
  - Neuralgia [Unknown]
  - Spinal fracture [Unknown]
  - Oedema peripheral [Unknown]
  - Multiple fractures [Recovering/Resolving]
  - Pain [Recovering/Resolving]
